FAERS Safety Report 8765662 (Version 3)
Quarter: 2012Q4

REPORT INFORMATION
  Report Type: 
  Country: IT (occurrence: IT)
  Receive Date: 20120904
  Receipt Date: 20120921
  Transmission Date: 20130627
  Serious: Yes (Hospitalization)
  Sender: FDA-Public Use
  Company Number: PHHY2012IT076194

PATIENT
  Age: 73 Year
  Sex: Male

DRUGS (5)
  1. TEGRETOL [Suspect]
     Indication: TRIGEMINAL NEURALGIA
     Dosage: 1200 mg, daily
     Route: 048
     Dates: start: 20120827, end: 20120829
  2. TICLOPIDINE [Concomitant]
     Dosage: 500 mg, UNK
     Route: 048
  3. ESOMEPRAZOLE [Concomitant]
     Dosage: 40 mg, UNK
     Route: 048
  4. LORAZEPAM [Concomitant]
     Dosage: 2.5 mg, UNK
     Route: 048
  5. NORMIX [Concomitant]
     Dosage: 200 mg, UNK
     Route: 048

REACTIONS (5)
  - Fall [Recovering/Resolving]
  - Vertigo [Recovering/Resolving]
  - Toxicity to various agents [Recovering/Resolving]
  - Anticonvulsant drug level increased [Recovering/Resolving]
  - Confusional state [Recovering/Resolving]
